FAERS Safety Report 5702373-6 (Version None)
Quarter: 2008Q2

REPORT INFORMATION
  Report Type: 
  Country: None (occurrence: None)
  Receive Date: 20080411
  Receipt Date: 20080328
  Transmission Date: 20081010
  Serious: Yes (Other)
  Sender: FDA-Public Use
  Company Number: PHHY2008US04711

PATIENT
  Age: 31 Year
  Sex: Female

DRUGS (4)
  1. DILANTIN [Concomitant]
     Dosage: 300 MG, QID
     Dates: start: 19980601, end: 19981001
  2. PAXIL [Concomitant]
     Indication: DEPRESSION
     Dates: start: 19950101
  3. FOLIC ACID [Concomitant]
  4. TEGRETOL [Suspect]
     Indication: EPILEPSY
     Dosage: 1200 MG, QID
     Dates: start: 19981001, end: 19990101

REACTIONS (2)
  - ABORTION SPONTANEOUS [None]
  - DRUG EXPOSURE DURING PREGNANCY [None]
